FAERS Safety Report 16695710 (Version 1)
Quarter: 2019Q3

REPORT INFORMATION
  Report Type: Report from Study
  Country: IT (occurrence: IT)
  Receive Date: 20190813
  Receipt Date: 20190813
  Transmission Date: 20191004
  Serious: Yes (Hospitalization)
  Sender: FDA-Public Use
  Company Number: IT-ACCORD-151295

PATIENT
  Age: 79 Year
  Sex: Female

DRUGS (10)
  1. METHOTREXATE. [Suspect]
     Active Substance: METHOTREXATE
     Indication: RHEUMATOID ARTHRITIS
     Dates: end: 20171130
  2. PANTORC [Concomitant]
     Active Substance: PANTOPRAZOLE SODIUM
  3. CLEXANE T [Suspect]
     Active Substance: ENOXAPARIN SODIUM
     Indication: VENOUS THROMBOSIS LIMB
     Route: 058
     Dates: start: 20171001, end: 20180301
  4. LEDERFOLIN [Concomitant]
     Active Substance: LEUCOVORIN CALCIUM
     Dosage: STRENGTH: 7.5 MG
  5. CARDICOR [Concomitant]
     Active Substance: BISOPROLOL
     Dosage: STRENGTH: 1.25 MG
  6. MYCOSTATIN [Concomitant]
     Active Substance: NYSTATIN
     Dosage: STRENGTH: 100,000 IU / ML
     Dates: start: 20180305, end: 20180313
  7. APROVEL [Concomitant]
     Active Substance: IRBESARTAN
     Dosage: STRENGTH: 150 MG
  8. FUROSEMIDE MYLAN GENERICS [Concomitant]
     Active Substance: FUROSEMIDE
     Dosage: STRENGTH: 25 MG
  9. PIPERACILLIN SODIUM/TAZOBACTAM SODIUM [Concomitant]
     Dates: start: 20180301, end: 20180306
  10. CLEXANE [Suspect]
     Active Substance: ENOXAPARIN SODIUM
     Indication: VENOUS THROMBOSIS LIMB
     Route: 058
     Dates: start: 20180302, end: 20180307

REACTIONS (3)
  - Petechiae [Recovering/Resolving]
  - Thrombocytopenia [Recovering/Resolving]
  - Anaemia [Recovering/Resolving]

NARRATIVE: CASE EVENT DATE: 20180307
